FAERS Safety Report 9462552 (Version 5)
Quarter: 2014Q1

REPORT INFORMATION
  Report Type: Report from Study
  Country: NL (occurrence: NL)
  Receive Date: 20130816
  Receipt Date: 20140307
  Transmission Date: 20141002
  Serious: Yes (Hospitalization)
  Sender: FDA-Public Use
  Company Number: PHHO2013NL010375

PATIENT
  Sex: 0

DRUGS (10)
  1. ACZ885 [Suspect]
     Indication: CARDIOVASCULAR EVENT PROPHYLAXIS
     Dosage: 150 MG, UNK
     Route: 058
     Dates: start: 20111108, end: 20130514
  2. ACETYLSALICYLIC ACID [Concomitant]
     Indication: PROPHYLAXIS
     Dosage: 80 MG, QD
     Route: 048
  3. SELEKTINE [Concomitant]
     Indication: HYPERCHOLESTEROLAEMIA
     Dosage: 20 MG, QD
     Route: 048
     Dates: start: 201208
  4. EZETIMIBE [Concomitant]
     Indication: HYPERCHOLESTEROLAEMIA
     Dosage: 10 MG, QD
     Route: 048
     Dates: start: 201211
  5. PERINDOPRIL [Concomitant]
     Indication: HYPERTENSION
     Dosage: 2 MG,
     Route: 048
  6. XALATAN [Concomitant]
     Dosage: 50 UG/ML, UNK
  7. VASELINE [Concomitant]
     Dosage: 500/500 UG/G
     Route: 061
  8. CUTIVATE [Concomitant]
     Dosage: 0.05 MG/G
     Route: 061
  9. SILKIS [Concomitant]
     Dosage: 3 UG/G
     Route: 061
  10. AVAMYS [Concomitant]
     Dosage: 27.5 UG/DOSE
     Route: 055

REACTIONS (1)
  - Non-cardiac chest pain [Recovered/Resolved]
